FAERS Safety Report 7922274-2 (Version None)
Quarter: 2011Q4

REPORT INFORMATION
  Report Type: 
  Country: None (occurrence: None)
  Receive Date: 20111117
  Receipt Date: 20110118
  Transmission Date: 20120403
  Serious: No
  Sender: FDA-Public Use
  Company Number: US-AMGEN-USASP2011003262

PATIENT
  Age: 76 Year
  Sex: Female
  Weight: 54.422 kg

DRUGS (1)
  1. ENBREL [Suspect]
     Dosage: 50 MG, QWK
     Route: 058
     Dates: start: 20100418

REACTIONS (2)
  - NASOPHARYNGITIS [None]
  - NAUSEA [None]
